FAERS Safety Report 25192604 (Version 1)
Quarter: 2025Q2

REPORT INFORMATION
  Report Type: Spontaneous
  Country: US (occurrence: US)
  Receive Date: 20250414
  Receipt Date: 20250414
  Transmission Date: 20250717
  Serious: No
  Sender: MYLAN
  Company Number: US-MYLANLABS-2025M1029918

PATIENT
  Age: 96 Year
  Sex: Female
  Weight: 68.04 kg

DRUGS (4)
  1. LATANOPROST [Suspect]
     Active Substance: LATANOPROST
     Indication: Macular degeneration
     Dosage: 1 GTT DROPS, PM (EVERY NIGHT AT BEDTIME)
  2. LATANOPROST [Suspect]
     Active Substance: LATANOPROST
     Dosage: 1 GTT DROPS, PM (EVERY NIGHT AT BEDTIME)
  3. LATANOPROST [Suspect]
     Active Substance: LATANOPROST
     Dosage: 1 GTT DROPS, PM (EVERY NIGHT AT BEDTIME)
  4. LATANOPROST [Suspect]
     Active Substance: LATANOPROST
     Dosage: 1 GTT DROPS, PM (EVERY NIGHT AT BEDTIME)

REACTIONS (2)
  - Off label use [Unknown]
  - Product packaging quantity issue [Unknown]

NARRATIVE: CASE EVENT DATE: 20250401
